FAERS Safety Report 7979816-0 (Version None)
Quarter: 2011Q4

REPORT INFORMATION
  Report Type: 
  Country: None (occurrence: None)
  Receive Date: 20111129
  Receipt Date: 20110831
  Transmission Date: 20120403
  Serious: Yes (Other)
  Sender: FDA-Public Use
  Company Number: PHEH2011US01851

PATIENT
  Age: 82 Year
  Sex: Female

DRUGS (7)
  1. CALCITRIOL [Concomitant]
  2. FOLIC ACID [Concomitant]
  3. VITAMIN D [Concomitant]
  4. CALCIUM CARBONATE [Concomitant]
  5. SOTALOL HCL [Concomitant]
  6. TORSEMIDE [Concomitant]
  7. LAMISIL [Suspect]
     Dosage: 250 MG, QD, ORAL
     Route: 048

REACTIONS (7)
  - HUNGER [None]
  - ABDOMINAL DISCOMFORT [None]
  - MALAISE [None]
  - GASTROINTESTINAL SOUNDS ABNORMAL [None]
  - WEIGHT DECREASED [None]
  - DYSPNOEA [None]
  - HEART RATE INCREASED [None]
